FAERS Safety Report 21197225 (Version 2)
Quarter: 2022Q4

REPORT INFORMATION
  Report Type: Other
  Country: US (occurrence: None)
  Receive Date: 20220810
  Receipt Date: 20221208
  Transmission Date: 20230113
  Serious: No
  Sender: FDA-Public Use
  Company Number: US-ROCHE-3157201

PATIENT
  Age: 36 Year
  Sex: Male
  Weight: 86.260 kg

DRUGS (1)
  1. OCREVUS [Suspect]
     Active Substance: OCRELIZUMAB
     Indication: Relapsing multiple sclerosis
     Dosage: INFUSE 300MG INTRAVENOUSLY ON DAY(S) 1 AND DAY(S) 15, THEN 600 MG EVERY 6 MONTHS
     Route: 042
     Dates: start: 202201

REACTIONS (1)
  - COVID-19 [Recovered/Resolved]

NARRATIVE: CASE EVENT DATE: 20220719
